FAERS Safety Report 14764038 (Version 1)
Quarter: 2018Q2

REPORT INFORMATION
  Report Type: Spontaneous
  Country: US (occurrence: US)
  Receive Date: 20180416
  Receipt Date: 20180416
  Transmission Date: 20180711
  Serious: Yes (Other)
  Sender: FDA-Public Use
  Company Number: US-MYLANLABS-2018M1020982

PATIENT
  Sex: Female
  Weight: 57 kg

DRUGS (5)
  1. LORAZEPAM TABLETS USP [Suspect]
     Active Substance: LORAZEPAM
     Indication: ANXIETY
     Dosage: UNK
     Route: 048
     Dates: start: 20180319
  2. FENTANYL. [Concomitant]
     Active Substance: FENTANYL
     Indication: PRODUCT USED FOR UNKNOWN INDICATION
     Dosage: UNK
  3. OXYCODONE [Concomitant]
     Active Substance: OXYCODONE
     Indication: PRODUCT USED FOR UNKNOWN INDICATION
     Dosage: UNK
  4. LORAZEPAM TABLETS USP [Suspect]
     Active Substance: LORAZEPAM
     Indication: PANIC ATTACK
  5. LORAZEPAM TABLETS USP [Suspect]
     Active Substance: LORAZEPAM
     Indication: BLOOD PRESSURE MEASUREMENT

REACTIONS (17)
  - Decreased appetite [Recovering/Resolving]
  - Toothache [Recovering/Resolving]
  - Gastrointestinal pain [Recovering/Resolving]
  - Dyspepsia [Recovering/Resolving]
  - Pain [Recovering/Resolving]
  - Seizure [Recovering/Resolving]
  - Wrong technique in product usage process [Not Recovered/Not Resolved]
  - Burning sensation [Recovering/Resolving]
  - Drug intolerance [Recovering/Resolving]
  - Pruritus [Recovering/Resolving]
  - Scratch [Recovering/Resolving]
  - Eye injury [Recovering/Resolving]
  - Abdominal pain upper [Recovering/Resolving]
  - Off label use [Not Recovered/Not Resolved]
  - Eye irritation [Recovering/Resolving]
  - Malaise [Recovering/Resolving]
  - Blood pressure increased [Recovering/Resolving]
